FAERS Safety Report 4303489-1 (Version None)
Quarter: 2004Q1

REPORT INFORMATION
  Report Type: 
  Country: None (occurrence: None)
  Receive Date: 20040224
  Receipt Date: 20040224
  Transmission Date: 20041129
  Serious: No
  Sender: FDA-Public Use
  Company Number: None

PATIENT

DRUGS (2)
  1. FORTEO [Suspect]
     Indication: OSTEOPOROSIS
     Dosage: 20 MCG SQ DAILY SUBCUTANEOUS
     Route: 058
  2. FORTAZ [Suspect]
     Indication: INFECTION
     Dosage: 1 GM TID INTRAVENOUS
     Route: 042

REACTIONS (1)
  - MEDICATION ERROR [None]
